FAERS Safety Report 5643738-0 (Version None)
Quarter: 2008Q1

REPORT INFORMATION
  Report Type: 
  Country: None (occurrence: None)
  Receive Date: 20080131
  Receipt Date: 20071016
  Transmission Date: 20080703
  Serious: Yes (Hospitalization)
  Sender: FDA-Public Use
  Company Number: 163-21880-07100822

PATIENT
  Age: 87 Year
  Sex: Female

DRUGS (2)
  1. REVLIMID [Suspect]
     Indication: MYELODYSPLASTIC SYNDROME
     Dosage: 10 MG, 1 IN 1 D , ORAL ; 5 MG, 1 IN 1 D, ORAL
     Route: 048
     Dates: start: 20070723, end: 20070801
  2. REVLIMID [Suspect]
     Indication: MYELODYSPLASTIC SYNDROME
     Dosage: 10 MG, 1 IN 1 D , ORAL ; 5 MG, 1 IN 1 D, ORAL
     Route: 048
     Dates: start: 20070823

REACTIONS (2)
  - ABDOMINAL PAIN [None]
  - URINARY TRACT INFECTION [None]
